FAERS Safety Report 9500981 (Version 2)
Quarter: 2013Q4

REPORT INFORMATION
  Report Type: Spontaneous
  Country: US (occurrence: US)
  Receive Date: 20130905
  Receipt Date: 20131120
  Transmission Date: 20140711
  Serious: No
  Sender: FDA-Public Use
  Company Number: US-PFIZER INC-2013254889

PATIENT
  Age: 65 Year
  Sex: Female
  Weight: 63.49 kg

DRUGS (6)
  1. GABAPENTIN [Suspect]
     Indication: PAIN
     Dosage: 600 MG, 3X/DAY
     Route: 048
     Dates: start: 2001
  2. GABAPENTIN [Suspect]
     Indication: SCIATIC NERVE INJURY
  3. GABAPENTIN [Suspect]
     Indication: PAIN
     Dosage: UNK
     Route: 048
  4. GABAPENTIN [Suspect]
     Indication: SCIATIC NERVE INJURY
  5. SIMVASTATIN [Concomitant]
     Indication: BLOOD CHOLESTEROL ABNORMAL
     Dosage: 40 MG, 1X/DAY
  6. LEVOTHYROXINE [Concomitant]
     Indication: THYROID DISORDER
     Dosage: 0.5 MG, 1X/DAY

REACTIONS (2)
  - Poor quality drug administered [Unknown]
  - Drug ineffective [Unknown]
